FAERS Safety Report 4448996-6 (Version None)
Quarter: 2004Q3

REPORT INFORMATION
  Report Type: 
  Country: None (occurrence: None)
  Receive Date: 20040909
  Receipt Date: 20040819
  Transmission Date: 20050211
  Serious: Yes (Other)
  Sender: FDA-Public Use
  Company Number: USA040875993

PATIENT

DRUGS (1)
  1. XIGRIS [Suspect]

REACTIONS (2)
  - INFUSION SITE REACTION [None]
  - SKIN DISCOLOURATION [None]
